FAERS Safety Report 4418135-6 (Version None)
Quarter: 2004Q3

REPORT INFORMATION
  Report Type: 
  Country: None (occurrence: None)
  Receive Date: 20040805
  Receipt Date: 20040805
  Transmission Date: 20050211
  Serious: No
  Sender: FDA-Public Use
  Company Number: None

PATIENT
  Age: 56 Year
  Sex: Female
  Weight: 70 kg

DRUGS (2)
  1. DOXIL [Suspect]
     Indication: OVARIAN CANCER
     Dosage: 74 MG IV X 1 TOTAL OF 6 CYCLES
     Route: 042
     Dates: start: 20040624
  2. DOXIL [Suspect]
     Indication: OVARIAN CANCER
     Dosage: 74 MG IV X 1 TOTAL OF 6 CYCLES
     Route: 042
     Dates: start: 20040715

REACTIONS (2)
  - DRUG ERUPTION [None]
  - RASH MACULO-PAPULAR [None]
